FAERS Safety Report 4705758-X (Version None)
Quarter: 2005Q2

REPORT INFORMATION
  Report Type: 
  Country: None (occurrence: None)
  Receive Date: 20050629
  Receipt Date: 20050617
  Transmission Date: 20051028
  Serious: Yes (Hospitalization)
  Sender: FDA-Public Use
  Company Number: AU-2005-010748

PATIENT
  Age: 41 Year
  Sex: Female
  Weight: 77.5 kg

DRUGS (2)
  1. LEUKINE [Suspect]
     Indication: CROHN'S DISEASE
     Dosage: 6 UG/KG, 1X/DAY, SUBCUTANEOUS
     Route: 058
     Dates: start: 20050602, end: 20050608
  2. VITAMIN B-12 [Concomitant]

REACTIONS (14)
  - ANOREXIA [None]
  - BACK PAIN [None]
  - CHEST DISCOMFORT [None]
  - DEHYDRATION [None]
  - DIARRHOEA [None]
  - DRY MOUTH [None]
  - FEELING HOT AND COLD [None]
  - LETHARGY [None]
  - MYALGIA [None]
  - NAUSEA [None]
  - PAIN [None]
  - RENAL FAILURE ACUTE [None]
  - VOMITING [None]
  - WEIGHT DECREASED [None]
